FAERS Safety Report 23205533 (Version 1)
Quarter: 2023Q4

REPORT INFORMATION
  Report Type: Spontaneous
  Country: US (occurrence: US)
  Receive Date: 20231120
  Receipt Date: 20231120
  Transmission Date: 20240109
  Serious: No
  Sender: FDA-Public Use
  Company Number: US-PFIZER INC-202300376436

PATIENT
  Age: 79 Year
  Sex: Female

DRUGS (1)
  1. IBRANCE [Suspect]
     Active Substance: PALBOCICLIB
     Dosage: 100 MG, CYCLIC (100 MG TABLETS - 1 TABLET DAILY BY MOUTH FOR 21 DAYS ON THEN 7 DAYS OFF)
     Route: 048
     Dates: start: 202205

REACTIONS (3)
  - Illness [Unknown]
  - Nasopharyngitis [Unknown]
  - Full blood count decreased [Unknown]
